FAERS Safety Report 10440772 (Version 1)
Quarter: 2014Q3

REPORT INFORMATION
  Report Type: Spontaneous
  Country: US (occurrence: None)
  Receive Date: 20140908
  Receipt Date: 20140908
  Transmission Date: 20150326
  Serious: Yes (Disabling)
  Sender: FDA-Public Use
  Company Number: None

PATIENT
  Age: 38 Year
  Sex: Female
  Weight: 60.78 kg

DRUGS (1)
  1. MEDROXYPROGESTERONE [Suspect]
     Active Substance: MEDROXYPROGESTERONE
     Indication: CONTRACEPTION
     Dosage: 1ML  EVERY 3 MONTHS  INTO THE MUSCLE
     Route: 030
     Dates: start: 20130228, end: 20130528

REACTIONS (3)
  - Arthralgia [None]
  - Back pain [None]
  - Weight increased [None]

NARRATIVE: CASE EVENT DATE: 20130528
